FAERS Safety Report 8476358-3 (Version None)
Quarter: 2012Q2

REPORT INFORMATION
  Report Type: 
  Country: None (occurrence: None)
  Receive Date: 20120628
  Receipt Date: 20120621
  Transmission Date: 20120825
  Serious: Yes (Other)
  Sender: FDA-Public Use
  Company Number: US-JNJFOC-20120611879

PATIENT

DRUGS (3)
  1. ASPIRIN [Concomitant]
  2. XARELTO [Suspect]
     Indication: PRODUCT USED FOR UNKNOWN INDICATION
     Route: 048
  3. TICAGRELOR [Concomitant]

REACTIONS (2)
  - ANGINA UNSTABLE [None]
  - CORONARY ARTERIAL STENT INSERTION [None]
